FAERS Safety Report 8116224-6 (Version None)
Quarter: 2012Q1

REPORT INFORMATION
  Report Type: 
  Country: None (occurrence: None)
  Receive Date: 20120206
  Receipt Date: 20120126
  Transmission Date: 20120608
  Serious: Yes (Other)
  Sender: FDA-Public Use
  Company Number: IL-NOVOPROD-343830

PATIENT
  Age: 64 Year
  Sex: Female
  Weight: 59 kg

DRUGS (2)
  1. VICTOZA [Suspect]
     Indication: DIABETES MELLITUS
     Dosage: 0.6 MG, QD
     Route: 065
     Dates: start: 20100905
  2. GLUCOPHAGE [Concomitant]

REACTIONS (4)
  - VOMITING [None]
  - BLOOD PRESSURE FLUCTUATION [None]
  - HEART RATE DECREASED [None]
  - DIARRHOEA [None]
